FAERS Safety Report 20596898 (Version 1)
Quarter: 2022Q1

REPORT INFORMATION
  Report Type: Spontaneous
  Country: US (occurrence: US)
  Receive Date: 20220315
  Receipt Date: 20220315
  Transmission Date: 20220423
  Serious: No
  Sender: FDA-Public Use
  Company Number: US-PERRIGO-21US005216

PATIENT
  Age: 27 Year
  Sex: Male
  Weight: 140.59 kg

DRUGS (6)
  1. NICOTINE POLACRILEX [Suspect]
     Active Substance: NICOTINE
     Indication: Smoking cessation therapy
     Dosage: 4 MG, Q1HR 9 TO10 TIMES DAILY
     Route: 002
     Dates: start: 202103, end: 202104
  2. NICOTINE POLACRILEX [Suspect]
     Active Substance: NICOTINE
     Dosage: 4 MG, Q1HR 9 TO10 TIMES DAILY
     Route: 002
     Dates: start: 202104
  3. VISTARIL                           /00058402/ [Concomitant]
     Indication: Anxiety
     Dosage: UNK
     Route: 065
  4. INVEGA TRINZA [Concomitant]
     Active Substance: PALIPERIDONE PALMITATE
     Indication: Schizophrenia
     Dosage: UNK
     Route: 065
  5. MIRTAZAPINE [Concomitant]
     Active Substance: MIRTAZAPINE
     Indication: Insomnia
     Dosage: UNK
     Route: 065
  6. GEODON                             /01487002/ [Concomitant]
     Indication: Depression
     Dosage: UNK
     Route: 065

REACTIONS (1)
  - Joint stiffness [Recovered/Resolved]

NARRATIVE: CASE EVENT DATE: 20210301
